FAERS Safety Report 4479369-8 (Version None)
Quarter: 2004Q4

REPORT INFORMATION
  Report Type: 
  Country: None (occurrence: None)
  Receive Date: 20041015
  Receipt Date: 20040924
  Transmission Date: 20050328
  Serious: Yes (Hospitalization, Other)
  Sender: FDA-Public Use
  Company Number: 2003143478US

PATIENT
  Sex: Female
  Weight: 120 kg

DRUGS (6)
  1. XANAX [Suspect]
     Indication: PANIC DISORDER
     Dosage: SEE IMAGE
     Route: 048
  2. XANAX [Suspect]
     Indication: PANIC DISORDER
     Dosage: SEE IMAGE
     Route: 048
     Dates: start: 19990519
  3. XANAX [Suspect]
     Indication: PANIC DISORDER
     Dosage: SEE IMAGE
     Route: 048
     Dates: start: 20000101
  4. KEFLEX [Concomitant]
  5. CIPRO [Concomitant]
  6. NEO-SYNEPHRINE (PHENYLEPHRINE HYDROCHLORIDE) [Concomitant]

REACTIONS (32)
  - ABDOMINAL PAIN UPPER [None]
  - ANGER [None]
  - ARTIFICIAL CROWN PROCEDURE [None]
  - BRONCHITIS [None]
  - CHEST PAIN [None]
  - DEHYDRATION [None]
  - DRUG DEPENDENCE [None]
  - DRUG WITHDRAWAL SYNDROME [None]
  - DRY MOUTH [None]
  - DYSPNOEA [None]
  - MASTITIS [None]
  - MENTAL DISORDER [None]
  - MOOD SWINGS [None]
  - MUSCLE SPASMS [None]
  - NASAL DISCOMFORT [None]
  - NASAL DISORDER [None]
  - NASAL DRYNESS [None]
  - ORAL DISCOMFORT [None]
  - PARAESTHESIA [None]
  - PARAESTHESIA ORAL [None]
  - PHARMACEUTICAL PRODUCT COMPLAINT [None]
  - RASH [None]
  - SINUS CONGESTION [None]
  - SINUS DISORDER [None]
  - SINUSITIS [None]
  - TACHYCARDIA [None]
  - TOOTH DISORDER [None]
  - TOOTH FRACTURE [None]
  - TREATMENT NONCOMPLIANCE [None]
  - UPPER RESPIRATORY TRACT INFECTION [None]
  - URTICARIA [None]
  - VITAMIN D DECREASED [None]
